FAERS Safety Report 14119945 (Version 2)
Quarter: 2018Q3

REPORT INFORMATION
  Report Type: Spontaneous
  Country: BE (occurrence: BE)
  Receive Date: 20171024
  Receipt Date: 20180703
  Transmission Date: 20181010
  Serious: Yes (Life-Threatening, Hospitalization, Other)
  Sender: FDA-Public Use
  Company Number: BE-GLAXOSMITHKLINE-BE2017GSK160962

PATIENT
  Sex: Male
  Weight: 78 kg

DRUGS (5)
  1. ESCITALOPRAM [Concomitant]
     Active Substance: ESCITALOPRAM OXALATE
     Indication: DEPRESSION
     Dosage: UNK
     Route: 048
     Dates: start: 2003
  2. REQUIP [Suspect]
     Active Substance: ROPINIROLE HYDROCHLORIDE
     Indication: PARKINSON^S DISEASE
     Dosage: 2 MG, PROGRESSIVELY INCREASED TO 16 MG
     Route: 048
     Dates: start: 201012, end: 201702
  3. PROLOPA HBS [Concomitant]
     Active Substance: BENSERAZIDE\LEVODOPA
     Indication: PARKINSON^S DISEASE
     Dosage: 1 UNK, QD
     Route: 048
     Dates: start: 201701
  4. ESCITALOPRAM [Concomitant]
     Active Substance: ESCITALOPRAM OXALATE
     Indication: PARKINSON^S DISEASE
  5. PROLOPA (BENSERAZIDA + L?DOPA) [Concomitant]
     Indication: PARKINSON^S DISEASE
     Dosage: UNK
     Route: 048
     Dates: start: 201012

REACTIONS (4)
  - Sexually inappropriate behaviour [Recovered/Resolved]
  - Suicidal ideation [Recovered/Resolved]
  - Mental status changes [Recovered/Resolved]
  - Libido increased [Recovered/Resolved]

NARRATIVE: CASE EVENT DATE: 2011
